FAERS Safety Report 7979174-1 (Version None)
Quarter: 2011Q4

REPORT INFORMATION
  Report Type: 
  Country: None (occurrence: None)
  Receive Date: 20111129
  Receipt Date: 20110921
  Transmission Date: 20120403
  Serious: Yes (Other)
  Sender: FDA-Public Use
  Company Number: PHEH2011US04720

PATIENT
  Sex: Male

DRUGS (3)
  1. ABILIFY [Suspect]
     Dosage: 2.5 MG
  2. ZONEGRAN [Suspect]
     Dosage: 100 MG, QID
  3. AFINITOR [Suspect]
     Dosage: 05 MG

REACTIONS (3)
  - GRAND MAL CONVULSION [None]
  - GAIT DISTURBANCE [None]
  - FEELING ABNORMAL [None]
